FAERS Safety Report 5142340-7 (Version None)
Quarter: 2006Q4

REPORT INFORMATION
  Report Type: 
  Country: None (occurrence: None)
  Receive Date: 20061102
  Receipt Date: 20061006
  Transmission Date: 20070319
  Serious: Yes (Hospitalization)
  Sender: FDA-Public Use
  Company Number: CA-GLAXOSMITHKLINE-A0622790A

PATIENT
  Age: 15 Year
  Sex: Male
  Weight: 100 kg

DRUGS (3)
  1. LAMOTRIGINE [Suspect]
     Indication: PSYCHOTIC DISORDER
     Dosage: 150MG PER DAY
     Route: 065
     Dates: start: 20060715, end: 20060918
  2. ZYPREXA [Concomitant]
     Indication: AFFECT LABILITY
     Dates: start: 20020101
  3. CHLORPROMAZINE [Concomitant]
     Dates: start: 20060701, end: 20060918

REACTIONS (3)
  - ACNE [None]
  - PSYCHIATRIC SYMPTOM [None]
  - RASH ERYTHEMATOUS [None]
